FAERS Safety Report 18261848 (Version 1)
Quarter: 2020Q3

REPORT INFORMATION
  Report Type: Spontaneous
  Country: US (occurrence: US)
  Receive Date: 20200914
  Receipt Date: 20200914
  Transmission Date: 20201103
  Serious: Yes (Hospitalization)
  Sender: FDA-Public Use
  Company Number: None

PATIENT
  Age: 42 Year
  Sex: Female
  Weight: 54.4 kg

DRUGS (8)
  1. NEURONTIN [Concomitant]
     Active Substance: GABAPENTIN
  2. DULOXETINE. [Concomitant]
     Active Substance: DULOXETINE
  3. ERGOCALCIFEROL. [Concomitant]
     Active Substance: ERGOCALCIFEROL
     Dosage: ?          OTHER DOSE:50,000 1 CAP Q7DAY;?
  4. ENTYVIO [Concomitant]
     Active Substance: VEDOLIZUMAB
  5. METOPROLOL SUCCINATE. [Concomitant]
     Active Substance: METOPROLOL SUCCINATE
  6. TACROLIMUS. [Suspect]
     Active Substance: TACROLIMUS
  7. PLAVIX [Concomitant]
     Active Substance: CLOPIDOGREL BISULFATE
  8. PREDNISONE. [Concomitant]
     Active Substance: PREDNISONE

REACTIONS (5)
  - Mesenteric artery thrombosis [None]
  - Colitis [None]
  - Incision site haematoma [None]
  - Retroperitoneal haematoma [None]
  - Embolism arterial [None]

NARRATIVE: CASE EVENT DATE: 20180903
